FAERS Safety Report 7184135-9 (Version None)
Quarter: 2010Q4

REPORT INFORMATION
  Report Type: 
  Country: None (occurrence: None)
  Receive Date: 20101222
  Receipt Date: 20101210
  Transmission Date: 20110411
  Serious: Yes (Death, Other)
  Sender: FDA-Public Use
  Company Number: DE-ELI_LILLY_AND_COMPANY-DE201011005472

PATIENT
  Sex: Female

DRUGS (1)
  1. FORTEO [Suspect]
     Indication: OSTEOPOROSIS
     Dosage: UNK, UNKNOWN
     Route: 058
     Dates: start: 20100519

REACTIONS (7)
  - KYPHOSCOLIOSIS [None]
  - MITRAL VALVE CALCIFICATION [None]
  - MITRAL VALVE INCOMPETENCE [None]
  - OSTEOPOROSIS [None]
  - POST PROCEDURAL HAEMATOMA [None]
  - POST PROCEDURAL HAEMORRHAGE [None]
  - SHOULDER DEFORMITY [None]
